FAERS Safety Report 13985620 (Version 1)
Quarter: 2017Q3

REPORT INFORMATION
  Report Type: Spontaneous
  Country: FR (occurrence: FR)
  Receive Date: 20170919
  Receipt Date: 20170919
  Transmission Date: 20171128
  Serious: Yes (Hospitalization)
  Sender: FDA-Public Use
  Company Number: FR-VELOXIS PHARMACEUTICALS-2026742

PATIENT
  Age: 51 Year
  Sex: Male

DRUGS (18)
  1. ENVARSUS XR [Suspect]
     Active Substance: TACROLIMUS
     Route: 048
  2. BACTRIM [Concomitant]
     Active Substance: SULFAMETHOXAZOLE\TRIMETHOPRIM
  3. XATRAL [Concomitant]
     Active Substance: ALFUZOSIN
  4. NEXIUM [Concomitant]
     Active Substance: ESOMEPRAZOLE MAGNESIUM
  5. ENVARSUS XR [Suspect]
     Active Substance: TACROLIMUS
     Route: 048
  6. NOVORAPID [Concomitant]
     Active Substance: INSULIN ASPART
  7. CORTANCYL [Concomitant]
     Active Substance: PREDNISONE
  8. BRICANYL [Concomitant]
     Active Substance: TERBUTALINE SULFATE
  9. ZELITREX [Concomitant]
     Active Substance: VALACYCLOVIR HYDROCHLORIDE
     Dates: start: 20170707, end: 20170707
  10. NEORECORMON [Concomitant]
     Active Substance: ERYTHROPOIETIN
  11. PARACETAMOL [Concomitant]
     Active Substance: ACETAMINOPHEN
  12. TEMOCILLINE [Concomitant]
     Dates: end: 20170722
  13. ENVARSUS XR [Suspect]
     Active Substance: TACROLIMUS
     Route: 048
  14. CELLCEPT [Concomitant]
     Active Substance: MYCOPHENOLATE MOFETIL\MYCOPHENOLATE MOFETIL HYDROCHLORIDE
  15. AMLODIPINE [Concomitant]
     Active Substance: AMLODIPINE BESYLATE
  16. ENVARSUS XR [Suspect]
     Active Substance: TACROLIMUS
     Indication: RENAL TRANSPLANT
     Route: 048
     Dates: start: 20170622, end: 20170802
  17. NOVOMIX [Concomitant]
     Active Substance: INSULIN ASPART
  18. SYMBICORT [Concomitant]
     Active Substance: BUDESONIDE\FORMOTEROL FUMARATE DIHYDRATE

REACTIONS (2)
  - Asthma [Recovered/Resolved]
  - Dyspnoea [Recovered/Resolved]

NARRATIVE: CASE EVENT DATE: 20170630
